FAERS Safety Report 17070643 (Version 1)
Quarter: 2019Q4

REPORT INFORMATION
  Report Type: Other
  Country: CZ (occurrence: CZ)
  Receive Date: 20191125
  Receipt Date: 20191125
  Transmission Date: 20200122
  Serious: Yes (Hospitalization, Other)
  Sender: FDA-Public Use
  Company Number: CZ-EMD SERONO-9129862

PATIENT
  Age: 48 Year
  Sex: Male

DRUGS (3)
  1. INSULIN BASAL [Suspect]
     Active Substance: INSULIN NOS
     Indication: LATENT AUTOIMMUNE DIABETES IN ADULTS
  2. GLIMEPIRIDE. [Suspect]
     Active Substance: GLIMEPIRIDE
     Indication: LATENT AUTOIMMUNE DIABETES IN ADULTS
  3. METFORMIN [Suspect]
     Active Substance: METFORMIN HYDROCHLORIDE
     Indication: LATENT AUTOIMMUNE DIABETES IN ADULTS

REACTIONS (3)
  - Diabetes mellitus inadequate control [Recovering/Resolving]
  - Peripheral sensory neuropathy [Recovering/Resolving]
  - Weight decreased [Recovering/Resolving]
